FAERS Safety Report 8430070-5 (Version None)
Quarter: 2012Q2

REPORT INFORMATION
  Report Type: 
  Country: None (occurrence: None)
  Receive Date: 20120612
  Receipt Date: 20120607
  Transmission Date: 20120825
  Serious: Yes (Hospitalization, Other)
  Sender: FDA-Public Use
  Company Number: US-ROCHE-1070848

PATIENT
  Sex: Male

DRUGS (9)
  1. DACLATASVIR [Suspect]
     Indication: HEPATITIS C
     Route: 048
     Dates: start: 20110510
  2. HYDROCODONE [Concomitant]
     Dates: start: 20110703
  3. ZANTAC [Concomitant]
     Dates: start: 20110802
  4. PEGASYS [Suspect]
     Indication: HEPATITIS C
     Route: 058
     Dates: start: 20110705
  5. COPEGUS [Suspect]
     Indication: HEPATITIS C
     Route: 048
     Dates: start: 20110705
  6. ASUNAPREVIR [Suspect]
     Indication: HEPATITIS C
     Route: 048
     Dates: start: 20110510
  7. BUTALBITAL [Concomitant]
     Dates: start: 20110101
  8. NEUPOGEN [Concomitant]
     Dates: start: 20120117
  9. IBUPROFEN [Concomitant]
     Dates: start: 20110101

REACTIONS (2)
  - DEHYDRATION [None]
  - ORTHOSTATIC HYPOTENSION [None]
